FAERS Safety Report 5625303-4 (Version None)
Quarter: 2008Q1

REPORT INFORMATION
  Report Type: 
  Country: None (occurrence: None)
  Receive Date: 20080213
  Receipt Date: 20080205
  Transmission Date: 20080703
  Serious: Yes (Other)
  Sender: FDA-Public Use
  Company Number: PHEH2007US15191

PATIENT
  Sex: Female

DRUGS (12)
  1. MIACALCIN [Suspect]
     Indication: OSTEOPOROSIS
     Dosage: UNK, QD
     Dates: end: 20071110
  2. LISINOPRIL [Concomitant]
     Dosage: 20 MG, QD
     Route: 048
  3. AMLODIPINE BESYLATE [Concomitant]
     Dosage: 10 MG, QD
     Route: 048
  4. HYDROCHLOROTHIAZIDE [Concomitant]
     Route: 048
  5. LEVOXYL [Concomitant]
     Dosage: 75 MG, QD
     Route: 048
  6. LIPITOR [Concomitant]
     Dosage: 40 MG, UNK
     Route: 048
  7. ZETIA [Concomitant]
     Dosage: 10 MG, UNK
     Route: 048
  8. ASPIRIN [Concomitant]
     Dates: end: 20071110
  9. ASPIRIN [Concomitant]
  10. ASCORBIC ACID [Concomitant]
     Dates: end: 20071110
  11. CALTRATE 600 + VITAMIN D [Concomitant]
     Dates: end: 20071110
  12. ANTINEOPLASTIC AGENTS [Concomitant]

REACTIONS (8)
  - ASPIRATION BIOPSY [None]
  - ERYTHEMA [None]
  - MUCOUS MEMBRANE DISORDER [None]
  - NASAL CAVITY CANCER [None]
  - NASAL DISCOMFORT [None]
  - NASAL OEDEMA [None]
  - PAPILLOMA [None]
  - RADIOTHERAPY [None]
